FAERS Safety Report 9845808 (Version 1)
Quarter: 2014Q1

REPORT INFORMATION
  Report Type: Spontaneous
  Country: US (occurrence: None)
  Receive Date: 20140122
  Receipt Date: 20140122
  Transmission Date: 20141002
  Serious: Yes (Hospitalization, Other)
  Sender: FDA-Public Use
  Company Number: 2010S1000486

PATIENT
  Age: 73 Year
  Sex: Female

DRUGS (9)
  1. FLEET PHOSPHO-SODA [Suspect]
     Indication: COLONOSCOPY
     Dosage: 2 IN 24 HOURS
     Route: 048
     Dates: start: 20041216, end: 20041217
  2. ATENOLOL (ATENOLOL) [Concomitant]
  3. BEXTRA (PARECOXIB SODIUM) [Concomitant]
  4. NORVASC (AMLODIPINE BESILATE) [Concomitant]
  5. DIOVAN (VALSARTAN) [Concomitant]
  6. BUSPAR (BUSPIRONE HYDROCHLORIDE) [Concomitant]
  7. HYDRODIURIL (HYDROCHLOROTHIAZIDE) [Concomitant]
  8. ULTRAM (TRAMADOL HYDROCHLORIDE) [Concomitant]
  9. FIORICET (CAFFEINE, BUTALBITAL, PARACETAMOL) [Concomitant]

REACTIONS (10)
  - Renal failure [None]
  - Hypokalaemia [None]
  - Syncope [None]
  - Abdominal pain [None]
  - Dehydration [None]
  - Diarrhoea [None]
  - Fall [None]
  - Head injury [None]
  - Deep vein thrombosis [None]
  - Anaemia [None]
